FAERS Safety Report 15367253 (Version 1)
Quarter: 2018Q3

REPORT INFORMATION
  Report Type: Spontaneous
  Country: US (occurrence: US)
  Receive Date: 20180903
  Receipt Date: 20180903
  Transmission Date: 20181010
  Serious: No
  Sender: FDA-Public Use
  Company Number: None

PATIENT
  Age: 63 Year
  Sex: Female
  Weight: 49.5 kg

DRUGS (8)
  1. ESTRADIOL. [Concomitant]
     Active Substance: ESTRADIOL
  2. PROGESTERONE. [Concomitant]
     Active Substance: PROGESTERONE
  3. ULTIMATE OMEGA [Concomitant]
  4. MAGNESIUM [Concomitant]
     Active Substance: MAGNESIUM
  5. VITAMIN D [Concomitant]
     Active Substance: CHOLECALCIFEROL
  6. CALCIUM CITRATE [Concomitant]
     Active Substance: CALCIUM CITRATE
  7. DHEA [Concomitant]
     Active Substance: PRASTERONE
  8. BELSOMRA [Suspect]
     Active Substance: SUVOREXANT
     Indication: SLEEP DISORDER
     Dosage: ?          QUANTITY:1 TABLET(S);?
     Route: 048
     Dates: start: 20180831, end: 20180902

REACTIONS (5)
  - Heart rate increased [None]
  - Fatigue [None]
  - Head discomfort [None]
  - Feeling abnormal [None]
  - Irritability [None]

NARRATIVE: CASE EVENT DATE: 20180831
